FAERS Safety Report 8146293 (Version 2)
Quarter: 2012Q4

REPORT INFORMATION
  Report Type: 
  Country: US (occurrence: US)
  Receive Date: 20110921
  Receipt Date: 20121130
  Transmission Date: 20130627
  Serious: Yes (Other)
  Sender: FDA-Public Use
  Company Number: US-GLAXOSMITHKLINE-A0833032A

PATIENT
  Age: 58 Year
  Sex: Male
  Weight: 90.7 kg

DRUGS (1)
  1. AVANDIA [Suspect]
     Indication: DIABETES MELLITUS
     Dosage: 4MG Per day
     Route: 048
     Dates: start: 20070514, end: 2008

REACTIONS (2)
  - Cerebrovascular accident [Unknown]
  - Cardiovascular disorder [Unknown]
